FAERS Safety Report 6685563-8 (Version None)
Quarter: 2010Q2

REPORT INFORMATION
  Report Type: 
  Country: None (occurrence: None)
  Receive Date: 20100419
  Receipt Date: 20100409
  Transmission Date: 20101027
  Serious: No
  Sender: FDA-Public Use
  Company Number: US-BIOGENIDEC-2010BI012228

PATIENT
  Age: 28 Year
  Sex: Female

DRUGS (1)
  1. TYSABRI [Suspect]
     Indication: MULTIPLE SCLEROSIS
     Route: 042
     Dates: start: 20100304

REACTIONS (6)
  - ARTHRALGIA [None]
  - DERMATITIS [None]
  - INFUSION SITE DERMATITIS [None]
  - INFUSION SITE INDURATION [None]
  - INFUSION SITE INFECTION [None]
  - INFUSION SITE SWELLING [None]
